FAERS Safety Report 8859237 (Version 1)
Quarter: 2012Q4

REPORT INFORMATION
  Report Type: 
  Country: US (occurrence: US)
  Receive Date: 20121024
  Receipt Date: 20121024
  Transmission Date: 20130627
  Serious: Yes (Other)
  Sender: FDA-Public Use
  Company Number: US-SANOFI-AVENTIS-2012SA075436

PATIENT
  Sex: Male

DRUGS (2)
  1. LANTUS [Suspect]
     Dosage: 15-20 units at bedtime
     Route: 058
  2. SOLOSTAR [Suspect]

REACTIONS (3)
  - Coronary artery bypass [Unknown]
  - Myocardial infarction [Unknown]
  - Limb operation [Unknown]
